FAERS Safety Report 20469643 (Version 1)
Quarter: 2022Q1

REPORT INFORMATION
  Report Type: Spontaneous
  Country: US (occurrence: None)
  Receive Date: 20220213
  Receipt Date: 20220213
  Transmission Date: 20220424
  Serious: Yes (Hospitalization)
  Sender: FDA-Public Use
  Company Number: None

PATIENT
  Age: 67 Year
  Sex: Male
  Weight: 108 kg

DRUGS (1)
  1. RYBELSUS [Suspect]
     Active Substance: SEMAGLUTIDE
     Indication: Diabetes mellitus
     Route: 048

REACTIONS (5)
  - Angioedema [None]
  - Asthenia [None]
  - Dizziness [None]
  - Hyperhidrosis [None]
  - Pruritus [None]

NARRATIVE: CASE EVENT DATE: 20220206
